FAERS Safety Report 16331388 (Version 1)
Quarter: 2019Q2

REPORT INFORMATION
  Report Type: Spontaneous
  Country: DE (occurrence: DE)
  Receive Date: 20190520
  Receipt Date: 20190520
  Transmission Date: 20190711
  Serious: Yes (Hospitalization)
  Sender: FDA-Public Use
  Company Number: DE-EMD SERONO-9091147

PATIENT
  Age: 35 Year
  Sex: Female
  Weight: 136 kg

DRUGS (1)
  1. MAVENCLAD [Suspect]
     Active Substance: CLADRIBINE
     Indication: RELAPSING MULTIPLE SCLEROSIS

REACTIONS (5)
  - Hypoaesthesia [Unknown]
  - Lymphocyte percentage decreased [Unknown]
  - Thrombophlebitis superficial [Unknown]
  - Multiple sclerosis relapse [Unknown]
  - Paraesthesia [Unknown]

NARRATIVE: CASE EVENT DATE: 201904
